FAERS Safety Report 9187169 (Version 2)
Quarter: 2013Q4

REPORT INFORMATION
  Report Type: Spontaneous
  Country: FR (occurrence: FR)
  Receive Date: 20130325
  Receipt Date: 20131014
  Transmission Date: 20140711
  Serious: Yes (Hospitalization, Other)
  Sender: FDA-Public Use
  Company Number: FR-PFIZER INC-2013074116

PATIENT
  Age: 25 Year
  Sex: Male

DRUGS (4)
  1. ENBREL [Suspect]
     Indication: ANKYLOSING SPONDYLITIS
     Dosage: UNK
     Dates: start: 200412, end: 200705
  2. SALAZOPYRINE [Suspect]
     Dosage: UNK
     Dates: start: 2007, end: 201206
  3. REMICADE [Suspect]
     Indication: ANKYLOSING SPONDYLITIS
     Dosage: 400 MG, EVERY 6 WEEKS
     Dates: start: 20071126, end: 201211
  4. PENTASA [Suspect]
     Dosage: UNK
     Dates: start: 201207

REACTIONS (1)
  - Chronic myeloid leukaemia [Recovered/Resolved with Sequelae]
